FAERS Safety Report 13880304 (Version 1)
Quarter: 2017Q3

REPORT INFORMATION
  Report Type: Spontaneous
  Country: US (occurrence: US)
  Receive Date: 20170818
  Receipt Date: 20170818
  Transmission Date: 20171127
  Serious: No
  Sender: FDA-Public Use
  Company Number: US-ASTELLAS-2016US050331

PATIENT
  Sex: Male

DRUGS (1)
  1. AMBISOME [Suspect]
     Active Substance: AMPHOTERICIN B
     Indication: PNEUMONIA ASPIRATION
     Dosage: 3 MG/KG (240MG), ONCE DAILY
     Route: 065
     Dates: start: 20161205

REACTIONS (1)
  - Infection [Unknown]
